FAERS Safety Report 8461313-X (Version None)
Quarter: 2012Q2

REPORT INFORMATION
  Report Type: 
  Country: None (occurrence: None)
  Receive Date: 20120625
  Receipt Date: 20120611
  Transmission Date: 20120825
  Serious: Yes (Other)
  Sender: FDA-Public Use
  Company Number: IN-RANBAXY-2012R1-57185

PATIENT
  Age: 35 Year
  Sex: Female

DRUGS (1)
  1. TOPIRAMATE [Suspect]
     Indication: PROPHYLAXIS
     Dosage: 25 MG, DAILY
     Route: 065

REACTIONS (1)
  - SOMNAMBULISM [None]
